FAERS Safety Report 18037287 (Version 1)
Quarter: 2020Q3

REPORT INFORMATION
  Report Type: Spontaneous
  Country: IL (occurrence: IL)
  Receive Date: 20200717
  Receipt Date: 20200717
  Transmission Date: 20201103
  Serious: Yes (Death, Life-Threatening, Hospitalization)
  Sender: FDA-Public Use
  Company Number: IL-PFIZER INC-2020272127

PATIENT
  Age: 68 Year
  Sex: Male

DRUGS (11)
  1. CLINDAMYCIN PHOSPHATE. [Suspect]
     Active Substance: CLINDAMYCIN PHOSPHATE
     Indication: STAPHYLOCOCCAL INFECTION
     Dosage: 900 MG, 3X/DAY, (TOTAL DAILY DOSE OF 2.7 G)
     Route: 042
  2. VANCOMYCIN [Suspect]
     Active Substance: VANCOMYCIN
     Indication: STAPHYLOCOCCAL INFECTION
  3. VERAPAMIL [Concomitant]
     Active Substance: VERAPAMIL HYDROCHLORIDE
     Dosage: UNK
  4. ADRENALINE HCL [Concomitant]
     Active Substance: EPINEPHRINE HYDROCHLORIDE
     Indication: SUPPORTIVE CARE
     Dosage: UNK (0.65 MCG/KG/MIN)
     Route: 041
  5. VANCOMYCIN [Suspect]
     Active Substance: VANCOMYCIN
     Indication: URINARY TRACT INFECTION
     Dosage: 1 G, DAILY
     Route: 042
  6. CEFAZOLIN [Suspect]
     Active Substance: CEFAZOLIN
     Indication: STAPHYLOCOCCAL INFECTION
     Dosage: 2 G, 2X/DAY, (TOTAL 4 G)
     Route: 042
  7. VANCOMYCIN [Suspect]
     Active Substance: VANCOMYCIN
     Indication: GAS GANGRENE
  8. ADRENALINE HCL [Concomitant]
     Active Substance: EPINEPHRINE HYDROCHLORIDE
     Dosage: UNK, (0.2 MCG/KG/MIN)
     Route: 042
  9. CLINDAMYCIN PHOSPHATE. [Suspect]
     Active Substance: CLINDAMYCIN PHOSPHATE
     Indication: BACTERIAL INFECTION
  10. INSULIN [Concomitant]
     Active Substance: INSULIN NOS
     Dosage: UNK
     Route: 042
  11. GLYPRESSIN [Concomitant]
     Active Substance: TERLIPRESSIN
     Indication: SUPPORTIVE CARE
     Dosage: UNK, (1.75 MCG/KG/H IV)
     Route: 042

REACTIONS (1)
  - Drug ineffective [Fatal]
